FAERS Safety Report 8382323-7 (Version None)
Quarter: 2012Q2

REPORT INFORMATION
  Report Type: 
  Country: None (occurrence: None)
  Receive Date: 20120522
  Receipt Date: 20120118
  Transmission Date: 20120825
  Serious: Yes (Disabling)
  Sender: FDA-Public Use
  Company Number: 2011-10241

PATIENT
  Age: 59 Year
  Sex: Male

DRUGS (1)
  1. IMMUCYST [Suspect]
     Indication: BLADDER CANCER
     Dosage: I.VES., BLADDER
     Route: 043
     Dates: end: 20110910

REACTIONS (1)
  - BLINDNESS UNILATERAL [None]
